FAERS Safety Report 7213062-3 (Version None)
Quarter: 2011Q1

REPORT INFORMATION
  Report Type: 
  Country: None (occurrence: None)
  Receive Date: 20110106
  Receipt Date: 20101230
  Transmission Date: 20110831
  Serious: Yes (Other)
  Sender: FDA-Public Use
  Company Number: B0692183A

PATIENT

DRUGS (1)
  1. VOTRIENT [Suspect]
     Route: 065

REACTIONS (1)
  - THROMBOCYTOPENIA [None]
